FAERS Safety Report 9837763 (Version 2)
Quarter: 2014Q2

REPORT INFORMATION
  Report Type: Spontaneous
  Country: US (occurrence: None)
  Receive Date: 20131205
  Receipt Date: 20140416
  Transmission Date: 20141212
  Serious: No
  Sender: FDA-Public Use
  Company Number: 163-POMAL-13082937

PATIENT
  Age: 67 Year
  Sex: Female
  Weight: 86.2 kg

DRUGS (19)
  1. POMALYST (POMALIDOMIDE) (4 MILLIGRAM, CAPSULES) [Suspect]
     Indication: PLASMA CELL MYELOMA
     Dosage: 21 IN 28D
     Route: 048
     Dates: start: 20130626, end: 2013
  2. ACYCLOVIR (ACICLOVIR) [Concomitant]
  3. FOLIC ACID (FOLIC ACID) [Concomitant]
  4. DESONIDE (DESONIDE) [Concomitant]
  5. OXYCODONE HCL (OXYCODONE HYDROCHLORIDE) [Concomitant]
  6. VITAMIN B12 (CYANOCOBALAMIN) [Concomitant]
  7. FISH OIL (FISH OIL) [Concomitant]
  8. VITAMIN D3 (COLECALCIFEROL) [Concomitant]
  9. DAPSONE (DAPSONE) [Concomitant]
  10. MYCELEX (CLOTRIMAZOLE) [Concomitant]
  11. LEVAQUIN (LEVOFLOXACIN) [Concomitant]
  12. PANTOPRAZOLE SOD DR (PANTOPRAZOLE) [Concomitant]
  13. LASIX (FUROSEMIDE) [Concomitant]
  14. DEXAMETHASONE (DEXAMETHASONE) [Concomitant]
  15. COUMADIN (WARFARIN SODIUM) [Concomitant]
  16. SYNTHROID (LEVOTHYROXINE SODIUM) [Concomitant]
  17. AREDIA (PAMIDRONATE DISODIUM) [Concomitant]
  18. POTASSIUM CL ER (POTASSIUM CHLORIDE) [Concomitant]
  19. CLONAZEPAM (CLONAZEPAM) [Concomitant]

REACTIONS (6)
  - Oesophageal disorder [None]
  - Back pain [None]
  - Fall [None]
  - Headache [None]
  - Pain in extremity [None]
  - Pain [None]
